FAERS Safety Report 17859509 (Version 3)
Quarter: 2020Q3

REPORT INFORMATION
  Report Type: Spontaneous
  Country: US (occurrence: US)
  Receive Date: 20200604
  Receipt Date: 20200713
  Transmission Date: 20201103
  Serious: No
  Sender: FDA-Public Use
  Company Number: US-PFIZER INC-2019122239

PATIENT
  Age: 11 Year
  Sex: Male
  Weight: 22.3 kg

DRUGS (7)
  1. CLONIDINE. [Concomitant]
     Active Substance: CLONIDINE
     Indication: SLEEP DISORDER
     Dosage: 0.2 MG, 1X/DAY
  2. KEPPRA [Concomitant]
     Active Substance: LEVETIRACETAM
     Indication: SEIZURE
     Dosage: UNK
  3. GENOTROPIN [Suspect]
     Active Substance: SOMATROPIN
     Dosage: UNK
  4. AMANTADINE. [Concomitant]
     Active Substance: AMANTADINE HYDROCHLORIDE
     Indication: BRAIN INJURY
     Dosage: UNK
  5. AMANTADINE. [Concomitant]
     Active Substance: AMANTADINE HYDROCHLORIDE
     Indication: IMPULSIVE BEHAVIOUR
  6. GENOTROPIN [Suspect]
     Active Substance: SOMATROPIN
     Indication: WEIGHT ABNORMAL
     Dosage: 1.1 MG, 1X/DAY(EVERY NIGHT)
     Route: 030
     Dates: start: 201903
  7. GENOTROPIN [Suspect]
     Active Substance: SOMATROPIN
     Indication: GROWTH HORMONE DEFICIENCY
     Dosage: UNK, 1X/DAY (0.3 ONCE AT NIGHT INTO TOP OF LEG)
     Dates: start: 201904

REACTIONS (5)
  - Wrong technique in device usage process [Unknown]
  - Device breakage [Unknown]
  - Incorrect route of product administration [Unknown]
  - Device issue [Unknown]
  - Drug dose omission by device [Unknown]

NARRATIVE: CASE EVENT DATE: 201903
